FAERS Safety Report 24058891 (Version 1)
Quarter: 2024Q3

REPORT INFORMATION
  Report Type: Spontaneous
  Country: US (occurrence: US)
  Receive Date: 20240708
  Receipt Date: 20240708
  Transmission Date: 20241016
  Serious: Yes (Hospitalization)
  Sender: ASPIRO PHARMA
  Company Number: US-AMAROX PHARMA-ASP2024US02131

PATIENT
  Age: 55 Year
  Sex: Male

DRUGS (1)
  1. DAPTOMYCIN [Suspect]
     Active Substance: DAPTOMYCIN
     Indication: Product used for unknown indication
     Dosage: 6 MILLIGRAM/KILOGRAM, QD
     Route: 065

REACTIONS (1)
  - Traumatic lung injury [Recovering/Resolving]
